FAERS Safety Report 25265181 (Version 1)
Quarter: 2025Q2

REPORT INFORMATION
  Report Type: Report from Study
  Country: US (occurrence: US)
  Receive Date: 20250502
  Receipt Date: 20250502
  Transmission Date: 20250716
  Serious: Yes (Hospitalization)
  Sender: ALNYLAM PHARMACEUTICALS
  Company Number: US-ALNYLAM PHARMACEUTICALS, INC.-ALN-2025-002897

PATIENT

DRUGS (1)
  1. AMVUTTRA [Suspect]
     Active Substance: VUTRISIRAN
     Indication: Hereditary neuropathic amyloidosis
     Route: 065
     Dates: start: 20240404, end: 20240404

REACTIONS (2)
  - Fall [Recovering/Resolving]
  - Neck injury [Recovering/Resolving]
